FAERS Safety Report 6155247-3 (Version None)
Quarter: 2009Q2

REPORT INFORMATION
  Report Type: 
  Country: None (occurrence: None)
  Receive Date: 20090415
  Receipt Date: 20090408
  Transmission Date: 20091009
  Serious: Yes (Other)
  Sender: FDA-Public Use
  Company Number: PHEH2009US03580

PATIENT

DRUGS (1)
  1. ENABLEX [Suspect]
     Dosage: 15 MG

REACTIONS (1)
  - ULCERATIVE KERATITIS [None]
